FAERS Safety Report 10007027 (Version 2)
Quarter: 2014Q1

REPORT INFORMATION
  Report Type: Spontaneous
  Country: US (occurrence: US)
  Receive Date: 20140313
  Receipt Date: 20140313
  Transmission Date: 20141002
  Serious: No
  Sender: FDA-Public Use
  Company Number: US-GILEAD-2013-0068322

PATIENT
  Age: 53 Year
  Sex: Female

DRUGS (1)
  1. LETAIRIS [Suspect]
     Indication: COR PULMONALE CHRONIC
     Dosage: 5 MG, QD
     Route: 048
     Dates: start: 20120427

REACTIONS (4)
  - Chest pain [Not Recovered/Not Resolved]
  - Unevaluable event [Recovering/Resolving]
  - Fatigue [Unknown]
  - Sinusitis [Unknown]
